FAERS Safety Report 15329520 (Version 4)
Quarter: 2018Q3

REPORT INFORMATION
  Report Type: Report from Study
  Country: CA (occurrence: CA)
  Receive Date: 20180829
  Receipt Date: 20180928
  Transmission Date: 20181010
  Serious: Yes (Other)
  Sender: FDA-Public Use
  Company Number: CA-HLSUS-2018-CA-001285

PATIENT
  Age: 56 Year
  Sex: Male

DRUGS (1)
  1. CLOZARIL [Suspect]
     Active Substance: CLOZAPINE
     Route: 048
     Dates: start: 20051205

REACTIONS (4)
  - Neutrophilia [Unknown]
  - Leukocytosis [Unknown]
  - Infection [Unknown]
  - Lymphoma [Unknown]

NARRATIVE: CASE EVENT DATE: 20180820
